FAERS Safety Report 17680006 (Version 1)
Quarter: 2020Q2

REPORT INFORMATION
  Report Type: Spontaneous
  Country: US (occurrence: US)
  Receive Date: 20200416
  Receipt Date: 20200416
  Transmission Date: 20200714
  Serious: Yes (Death, Hospitalization)
  Sender: FDA-Public Use
  Company Number: None

PATIENT
  Age: 83 Year

DRUGS (1)
  1. REVLIMID [Suspect]
     Active Substance: LENALIDOMIDE
     Indication: MANTLE CELL LYMPHOMA
     Route: 048
     Dates: start: 20180430, end: 20180531

REACTIONS (5)
  - Fall [None]
  - Fatigue [None]
  - Anaemia [None]
  - Dizziness [None]
  - Disease progression [None]

NARRATIVE: CASE EVENT DATE: 20180531
